FAERS Safety Report 9412766 (Version 2)
Quarter: 2013Q3

REPORT INFORMATION
  Report Type: Report from Study
  Country: CL (occurrence: CL)
  Receive Date: 20130722
  Receipt Date: 20130902
  Transmission Date: 20140515
  Serious: Yes (Other)
  Sender: FDA-Public Use
  Company Number: PHHY2013CL077057

PATIENT
  Age: 24 Year
  Sex: Male

DRUGS (3)
  1. LEPONEX [Suspect]
     Indication: DEPRESSIVE SYMPTOM
     Dosage: 100 MG, BID
  2. LEPONEX [Suspect]
     Indication: OFF LABEL USE
  3. CARBORON RETARD [Concomitant]
     Indication: DEPRESSIVE SYMPTOM
     Dosage: 400 MG, BID

REACTIONS (1)
  - Psychiatric decompensation [Recovered/Resolved]
